FAERS Safety Report 5067431-0 (Version None)
Quarter: 2006Q3

REPORT INFORMATION
  Report Type: 
  Country: None (occurrence: None)
  Receive Date: 20060726
  Receipt Date: 20060626
  Transmission Date: 20061208
  Serious: Yes (Life-Threatening, Hospitalization, Other)
  Sender: FDA-Public Use
  Company Number: 6023909

PATIENT
  Age: 66 Year
  Sex: Female

DRUGS (5)
  1. FLUOXETINE [Suspect]
     Indication: INTENTIONAL OVERDOSE
     Dosage: 60,000 MG (60 MG, 1 IN 1 D)
  2. LORAZEPAM [Suspect]
     Indication: INTENTIONAL OVERDOSE
     Dosage: 10,000 MG (10 MG, 1 IN 1D)
  3. TRANYLCYPROMINE SULFATE [Suspect]
     Indication: INTENTIONAL OVERDOSE
     Dosage: 100,0000 MG (10 MG, 1 IN 1 D)
  4. TRIFLUOPERAZINE HCL [Suspect]
     Indication: INTENTIONAL OVERDOSE
     Dosage: 20,000 MG (20 MG, 1 IN 1 D)
  5. REMIFENTANIL (REMIFENTANIL) [Suspect]
     Indication: DRUG USE FOR UNKNOWN INDICATION
     Dosage: 136,8000 UG/KG (5,7 UG/KG, 1 IN 1 HR), INTRAVENOUS DRIP
     Route: 041

REACTIONS (7)
  - COMA [None]
  - DRUG INTERACTION [None]
  - EYE MOVEMENT DISORDER [None]
  - MULTIPLE DRUG OVERDOSE INTENTIONAL [None]
  - NEUROLEPTIC MALIGNANT SYNDROME [None]
  - OXYGEN SATURATION DECREASED [None]
  - SEROTONIN SYNDROME [None]
